FAERS Safety Report 6106277-9 (Version None)
Quarter: 2009Q1

REPORT INFORMATION
  Report Type: 
  Country: None (occurrence: None)
  Receive Date: 20090304
  Receipt Date: 20090220
  Transmission Date: 20090719
  Serious: Yes (Death)
  Sender: FDA-Public Use
  Company Number: GXKR2009US02264

PATIENT
  Age: 53 Year
  Sex: Male

DRUGS (6)
  1. CHLORPROMAZINE [Suspect]
  2. AMITRIPTYLINE HCL [Suspect]
  3. TRAMADOL HCL [Suspect]
  4. ZOLPIDEM [Suspect]
  5. ZYPREXA [Concomitant]
  6. HYDROCODONE (HYDROCODONE) [Concomitant]

REACTIONS (7)
  - BULLOUS LUNG DISEASE [None]
  - DRUG TOXICITY [None]
  - EMPHYSEMA [None]
  - HEPATIC STEATOSIS [None]
  - HYPERTENSIVE HEART DISEASE [None]
  - NEPHROSCLEROSIS [None]
  - PLEURAL ADHESION [None]
